FAERS Safety Report 19035967 (Version 1)
Quarter: 2021Q1

REPORT INFORMATION
  Report Type: Spontaneous
  Country: CO (occurrence: CO)
  Receive Date: 20210321
  Receipt Date: 20210321
  Transmission Date: 20210420
  Serious: Yes (Other)
  Sender: FDA-Public Use
  Company Number: CO-AMGEN-COLSP2021043062

PATIENT
  Age: 67 Year
  Sex: Male

DRUGS (1)
  1. ENBREL [Suspect]
     Active Substance: ETANERCEPT
     Indication: RHEUMATOID ARTHRITIS
     Dosage: 50 MG
     Route: 058
     Dates: start: 2019

REACTIONS (5)
  - Rheumatoid arthritis [Recovering/Resolving]
  - Feeling abnormal [Recovering/Resolving]
  - Condition aggravated [Recovering/Resolving]
  - Depressed mood [Recovering/Resolving]
  - Prostatic disorder [Recovering/Resolving]

NARRATIVE: CASE EVENT DATE: 202102
